FAERS Safety Report 25657954 (Version 1)
Quarter: 2025Q3

REPORT INFORMATION
  Report Type: Spontaneous
  Country: US (occurrence: US)
  Receive Date: 20250808
  Receipt Date: 20250808
  Transmission Date: 20251021
  Serious: Yes (Hospitalization, Other)
  Sender: NUVATION BIO
  Company Number: US-Nuvation Bio-2182091

PATIENT
  Sex: Male

DRUGS (1)
  1. IBTROZI [Suspect]
     Active Substance: TALETRECTINIB ADIPATE

REACTIONS (1)
  - Diverticulitis [Unknown]
